FAERS Safety Report 25878876 (Version 1)
Quarter: 2025Q4

REPORT INFORMATION
  Report Type: Spontaneous
  Country: TR (occurrence: None)
  Receive Date: 20251003
  Receipt Date: 20251003
  Transmission Date: 20260118
  Serious: Yes (Disabling, Other)
  Sender: ORGANON
  Company Number: TR-MLMSERVICE-20250919-PI652455-00040-1

PATIENT
  Age: 62 Year
  Sex: Female

DRUGS (4)
  1. ALENDRONATE [Suspect]
     Active Substance: ALENDRONATE SODIUM
     Indication: Osteoporosis postmenopausal
     Dosage: WEEKLY 70 MG
  2. ALENDRONATE [Suspect]
     Active Substance: ALENDRONATE SODIUM
     Dosage: SECOND WEEK^S DOSE
  3. CALCIUM [Concomitant]
     Active Substance: CALCIUM
     Indication: Osteoporosis postmenopausal
     Dosage: 1 G/DAY
  4. VITAMIN D3 [Concomitant]
     Active Substance: CHOLECALCIFEROL
     Indication: Osteoporosis postmenopausal
     Dosage: 880 IU/DAY

REACTIONS (2)
  - Polyarthritis [Recovered/Resolved]
  - Synovitis [Recovered/Resolved]
